FAERS Safety Report 9477444 (Version 1)
Quarter: 2013Q3

REPORT INFORMATION
  Report Type: Spontaneous
  Country: US (occurrence: US)
  Receive Date: 20130826
  Receipt Date: 20130826
  Transmission Date: 20140515
  Serious: No
  Sender: FDA-Public Use
  Company Number: US-009507513-1308USA009791

PATIENT
  Age: 52 Year
  Sex: Male

DRUGS (3)
  1. PEGINTRON [Suspect]
     Indication: HEPATITIS C
     Dosage: 150 MICROGRAM, QW
     Dates: start: 20130819
  2. REBETOL [Suspect]
     Route: 048
  3. INCIVEK [Suspect]

REACTIONS (6)
  - Eye pain [Recovering/Resolving]
  - Back pain [Recovering/Resolving]
  - Pyrexia [Recovering/Resolving]
  - Vomiting [Recovering/Resolving]
  - Headache [Recovering/Resolving]
  - Influenza like illness [Recovering/Resolving]
